FAERS Safety Report 6938813-4 (Version None)
Quarter: 2010Q3

REPORT INFORMATION
  Report Type: 
  Country: None (occurrence: None)
  Receive Date: 20100824
  Receipt Date: 20100811
  Transmission Date: 20110219
  Serious: Yes (Other)
  Sender: FDA-Public Use
  Company Number: US-JNJFOC-20100805598

PATIENT
  Age: 30 Year
  Sex: Female

DRUGS (8)
  1. TOPAMAX [Suspect]
     Indication: CONVULSION
     Route: 048
  2. TOPAMAX [Suspect]
     Dosage: 400MG AT LAST MENSTRUAL PERIOD, 600MG ON 1-JAN-2010, 400MG ON 08-MAY-2010
     Route: 048
  3. TOPAMAX [Suspect]
     Route: 048
  4. ORAL CONTRACEPTIVE NOS [Interacting]
     Indication: CONTRACEPTION
     Route: 048
  5. LAMICTAL [Suspect]
     Indication: CONVULSION
     Dosage: 10 WEEKS GA- 20-NOV-2010 29 WEEKS GA -25-MAR-2010 200MG 37WEEKS- 20-MAY-2010
     Route: 065
  6. LAMICTAL [Suspect]
     Indication: AFFECTIVE DISORDER
     Dosage: 10 WEEKS GA- 20-NOV-2010 29 WEEKS GA -25-MAR-2010 200MG 37WEEKS- 20-MAY-2010
     Route: 065
  7. ANTIBIOTICS [Suspect]
     Indication: BRONCHITIS
     Route: 065
  8. BUSPAR [Suspect]
     Indication: ANXIETY
     Route: 065

REACTIONS (3)
  - DRUG EXPOSURE DURING PREGNANCY [None]
  - DRUG INTERACTION [None]
  - PREGNANCY ON ORAL CONTRACEPTIVE [None]
